FAERS Safety Report 7805540-0 (Version None)
Quarter: 2011Q4

REPORT INFORMATION
  Report Type: 
  Country: None (occurrence: None)
  Receive Date: 20111010
  Receipt Date: 20111010
  Transmission Date: 20120403
  Serious: Yes (Other)
  Sender: FDA-Public Use
  Company Number: NL-ABBOTT-11P-114-0861684-00

PATIENT
  Sex: Female

DRUGS (14)
  1. GALANTAMINE HYDROBROMIDE [Concomitant]
     Indication: DEMENTIA ALZHEIMER'S TYPE
     Route: 048
  2. OMEPRAZOLE [Concomitant]
     Indication: GASTRIC DISORDER
     Route: 048
  3. CALCIUM CARBONATE W/COLECALCIFEROL [Concomitant]
     Indication: OSTEOPOROSIS PROPHYLAXIS
     Route: 048
  4. NITRAZEPAM [Concomitant]
     Indication: INSOMNIA
     Route: 048
  5. HUMIRA [Suspect]
     Indication: RHEUMATOID ARTHRITIS
     Route: 058
     Dates: start: 20061101, end: 20110914
  6. CLEMASTINE FUMARATE [Concomitant]
     Indication: PRODUCT USED FOR UNKNOWN INDICATION
     Route: 048
  7. TRAMADOL HCL [Concomitant]
     Indication: PAIN
     Route: 048
  8. HYDROXOCOBALAMIN [Concomitant]
     Indication: VITAMIN B12 DEFICIENCY
     Dosage: 500MCG/ML, AMPULES 2ML
     Route: 030
  9. IBUPROFEN [Concomitant]
     Indication: PAIN
     Route: 048
  10. IBANDRONINEZUUR [Concomitant]
     Indication: OSTEOPOROSIS
     Route: 048
  11. OMEPRAZOLE [Concomitant]
     Indication: PROPHYLAXIS
  12. BETAHISTINE [Concomitant]
     Indication: PRODUCT USED FOR UNKNOWN INDICATION
     Route: 048
  13. RIVASTIGMINE [Concomitant]
     Indication: DEMENTIA ALZHEIMER'S TYPE
     Dosage: 9.5MG/24HR
     Route: 062
  14. DESLORATADINE [Concomitant]
     Indication: PRODUCT USED FOR UNKNOWN INDICATION
     Route: 048

REACTIONS (3)
  - DRUG INEFFECTIVE [None]
  - RHEUMATOID ARTHRITIS [None]
  - DEMENTIA ALZHEIMER'S TYPE [None]
